FAERS Safety Report 4347379-7 (Version None)
Quarter: 2004Q2

REPORT INFORMATION
  Report Type: 
  Country: None (occurrence: None)
  Receive Date: 20040426
  Receipt Date: 20040426
  Transmission Date: 20050107
  Serious: Yes (Other)
  Sender: FDA-Public Use
  Company Number: None

PATIENT
  Age: 85 Year
  Sex: Male
  Weight: 91.5 kg

DRUGS (17)
  1. DIPRIVAN [Suspect]
     Indication: INTUBATION
     Dosage: 10 MG/ML TO SEDATIO IV
     Route: 042
     Dates: start: 20040415, end: 20040423
  2. DIPRIVAN [Suspect]
     Indication: SEDATION
     Dosage: 10 MG/ML TO SEDATIO IV
     Route: 042
     Dates: start: 20040415, end: 20040423
  3. ASPIRIN [Concomitant]
  4. DILANTIN [Concomitant]
  5. AMILATE [Concomitant]
  6. FAMOTIDINE [Concomitant]
  7. FUROSEMIDE [Concomitant]
  8. HEPARIN [Concomitant]
  9. INSULIN [Concomitant]
  10. LEVAQUIN [Concomitant]
  11. LEVOTHYROXINE [Concomitant]
  12. MORPHINE [Concomitant]
  13. EPOGEN [Concomitant]
  14. ZOCOR [Concomitant]
  15. XALATAN [Concomitant]
  16. VERSED [Concomitant]
  17. PERCOCET [Concomitant]

REACTIONS (1)
  - BLOOD PHOSPHORUS INCREASED [None]
